FAERS Safety Report 21382566 (Version 5)
Quarter: 2023Q2

REPORT INFORMATION
  Report Type: Report from Study
  Country: DK (occurrence: None)
  Receive Date: 20220927
  Receipt Date: 20230403
  Transmission Date: 20230721
  Serious: Yes (Hospitalization)
  Sender: FDA-Public Use
  Company Number: DK-ROCHE-3182289

PATIENT
  Age: 58 Year
  Sex: Male
  Weight: 78.2 kg

DRUGS (13)
  1. ATEZOLIZUMAB [Suspect]
     Active Substance: ATEZOLIZUMAB
     Indication: Metastatic renal cell carcinoma
     Dosage: ON 10/MAY/2022, MOST RECENT DOSE OF ATEZOLIZUMAB DRUG ADMIN PRIOR AE AND SAE WAS 1200 MG.
     Route: 041
     Dates: start: 20210914
  2. CABOZANTINIB [Suspect]
     Active Substance: CABOZANTINIB
     Indication: Metastatic renal cell carcinoma
     Dosage: DOSE LAST STUDY DRUG ADMIN PRIOR AE AND SAE WAS 40 MG ON 29/MAY/2022.
     Route: 048
     Dates: start: 20210914
  3. UNIKALK FORTE [Concomitant]
     Route: 048
     Dates: start: 20220124
  4. MAGNESIUM [Concomitant]
     Active Substance: MAGNESIUM
     Indication: Hypomagnesaemia
     Route: 048
     Dates: start: 20220407
  5. AXITINIB [Concomitant]
     Active Substance: AXITINIB
     Indication: Acute kidney injury
     Dates: start: 20220606, end: 20220912
  6. PREDNISOLONE [Concomitant]
     Active Substance: PREDNISOLONE
     Indication: Acute kidney injury
     Route: 048
     Dates: start: 20220906, end: 20220914
  7. PREDNISOLONE [Concomitant]
     Active Substance: PREDNISOLONE
     Route: 048
     Dates: start: 20220923
  8. PREDNISOLONE [Concomitant]
     Active Substance: PREDNISOLONE
     Route: 048
     Dates: start: 20221217, end: 20221219
  9. PREDNISOLONE [Concomitant]
     Active Substance: PREDNISOLONE
     Route: 048
     Dates: start: 20221129, end: 20230106
  10. PREDNISOLONE [Concomitant]
     Active Substance: PREDNISOLONE
     Route: 048
     Dates: start: 20230107, end: 20230108
  11. PANTOPRAZOLE SODIUM [Concomitant]
     Active Substance: PANTOPRAZOLE SODIUM
     Route: 048
     Dates: start: 20220907
  12. SUTENT [Concomitant]
     Active Substance: SUNITINIB MALATE
     Dates: start: 20221010
  13. SUNITINIB [Concomitant]
     Active Substance: SUNITINIB
     Dates: start: 20221010, end: 20221010

REACTIONS (1)
  - Nephritis [Not Recovered/Not Resolved]

NARRATIVE: CASE EVENT DATE: 20220913
